FAERS Safety Report 10058565 (Version 1)
Quarter: 2014Q2

REPORT INFORMATION
  Report Type: Not Available
  Country: GB (occurrence: GB)
  Receive Date: 20140404
  Receipt Date: 20140404
  Transmission Date: 20141212
  Serious: Yes (Other)
  Sender: FDA-Public Use
  Company Number: GB-ASTELLAS-2014EU003502

PATIENT
  Age: 46 Year
  Sex: Female
  Weight: 54.88 kg

DRUGS (6)
  1. TACROLIMUS SYSTEMIC [Suspect]
     Indication: LIVER TRANSPLANT
     Dosage: 4 MG, UNKNOWN/D
     Route: 048
     Dates: start: 201312, end: 20140303
  2. AZATHIOPRINE [Concomitant]
     Dosage: UNK
     Route: 065
  3. PREDNISOLON                        /00016201/ [Concomitant]
     Dosage: UNK
     Route: 065
  4. ASPIRIN [Concomitant]
     Dosage: UNK
     Route: 065
  5. PREGABALIN [Concomitant]
     Dosage: UNK
     Route: 065
  6. RANITIDINE [Concomitant]
     Dosage: UNK
     Route: 065

REACTIONS (3)
  - Depressed mood [Recovering/Resolving]
  - Psychotic disorder [Recovering/Resolving]
  - Major depression [Recovering/Resolving]
